FAERS Safety Report 6474971-6 (Version None)
Quarter: 2009Q4

REPORT INFORMATION
  Report Type: 
  Country: None (occurrence: None)
  Receive Date: 20091204
  Receipt Date: 20090424
  Transmission Date: 20100525
  Serious: Yes (Life-Threatening, Hospitalization)
  Sender: FDA-Public Use
  Company Number: DE-ELI_LILLY_AND_COMPANY-DE200903002947

PATIENT
  Age: 30 Year
  Sex: Female
  Weight: 59 kg

DRUGS (13)
  1. ZYPREXA [Suspect]
     Indication: OBSESSIVE-COMPULSIVE DISORDER
     Dosage: 5 MG, UNK
     Route: 048
     Dates: start: 20080429, end: 20080430
  2. ZYPREXA [Suspect]
     Dosage: 10 MG, UNK
     Route: 048
     Dates: start: 20080501, end: 20080512
  3. ZYPREXA [Suspect]
     Dosage: 5 MG, UNK
     Route: 048
     Dates: start: 20080520, end: 20080521
  4. VENLAFAXINE HCL [Concomitant]
     Dosage: 150 MG, UNK
     Route: 048
     Dates: start: 20080514, end: 20080515
  5. VENLAFAXINE HCL [Concomitant]
     Dosage: 225 MG, UNK
     Route: 048
     Dates: start: 20080516, end: 20080521
  6. SEROQUEL [Concomitant]
     Dosage: 100 MG, UNK
     Route: 048
     Dates: start: 20080514, end: 20080515
  7. SEROQUEL [Concomitant]
     Dosage: 200 MG, UNK
     Dates: start: 20080516, end: 20080519
  8. SEROQUEL [Concomitant]
     Dosage: 100 MG, UNK
     Route: 048
     Dates: start: 20080520, end: 20080521
  9. AKINETON [Concomitant]
     Dosage: 4 MG, UNK
     Route: 048
     Dates: start: 20080416, end: 20080521
  10. ESCITALOPRAM [Concomitant]
     Route: 048
     Dates: start: 20080429, end: 20080513
  11. LORAZEPAM [Concomitant]
     Dosage: 1.5 MG, UNK
     Route: 048
     Dates: start: 20080430, end: 20080505
  12. LORAZEPAM [Concomitant]
     Dosage: 1 MG, UNK
     Route: 048
     Dates: start: 20080506, end: 20080521
  13. RISPERIDONE [Concomitant]
     Dates: end: 20080504

REACTIONS (5)
  - DEPRESSIVE SYMPTOM [None]
  - HEAD INJURY [None]
  - MULTIPLE FRACTURES [None]
  - SUICIDAL IDEATION [None]
  - SUICIDE ATTEMPT [None]
